FAERS Safety Report 6340780-1 (Version None)
Quarter: 2009Q3

REPORT INFORMATION
  Report Type: 
  Country: None (occurrence: None)
  Receive Date: 20090904
  Receipt Date: 20090901
  Transmission Date: 20100115
  Serious: Yes (Other)
  Sender: FDA-Public Use
  Company Number: US-BAYER-200921791NA

PATIENT
  Age: 60 Year
  Sex: Female
  Weight: 67 kg

DRUGS (4)
  1. AVELOX [Suspect]
     Indication: DRUG USE FOR UNKNOWN INDICATION
     Dates: start: 20090519
  2. AVELOX [Suspect]
     Dates: start: 20090101
  3. BENICAR [Concomitant]
  4. LIPITOR [Concomitant]

REACTIONS (3)
  - ANAPHYLACTIC REACTION [None]
  - GENERALISED ERYTHEMA [None]
  - SYNCOPE [None]
